FAERS Safety Report 4636285-6 (Version None)
Quarter: 2005Q2

REPORT INFORMATION
  Report Type: 
  Country: None (occurrence: None)
  Receive Date: 20050415
  Receipt Date: 20040618
  Transmission Date: 20051028
  Serious: No
  Sender: FDA-Public Use
  Company Number: US-BRISTOL-MYERS SQUIBB COMPANY-12620597

PATIENT
  Sex: Female

DRUGS (3)
  1. PARAPLATIN [Suspect]
     Indication: OVARIAN CANCER
     Route: 042
     Dates: start: 20040609, end: 20040609
  2. ALOXI [Concomitant]
     Indication: PREMEDICATION
     Route: 042
     Dates: start: 20040609
  3. DECADRON [Concomitant]
     Indication: PREMEDICATION
     Route: 042
     Dates: start: 20040609

REACTIONS (1)
  - EXTRAVASATION [None]
